FAERS Safety Report 8193319-2 (Version None)
Quarter: 2012Q1

REPORT INFORMATION
  Report Type: 
  Country: None (occurrence: None)
  Receive Date: 20120308
  Receipt Date: 20120229
  Transmission Date: 20120608
  Serious: Yes (Other)
  Sender: FDA-Public Use
  Company Number: JP-ROXANE LABORATORIES, INC.-2012-RO-00752RO

PATIENT
  Age: 57 Year
  Sex: Female
  Weight: 45 kg

DRUGS (11)
  1. CYCLOPHOSPHAMIDE [Suspect]
     Dates: start: 20080101, end: 20090601
  2. TAMOXIFEN CITRATE [Suspect]
     Indication: BREAST CANCER
  3. CYCLOPHOSPHAMIDE [Suspect]
     Indication: BREAST CANCER
     Dates: start: 19980101
  4. CYCLOPHOSPHAMIDE [Suspect]
     Indication: METASTASES TO RETROPERITONEUM
     Dates: start: 20040101
  5. METHOTREXATE [Suspect]
     Indication: BREAST CANCER
     Dates: start: 19980101
  6. DOCETAXEL [Suspect]
     Indication: METASTASES TO RETROPERITONEUM
     Dates: start: 20080101, end: 20090601
  7. ANASTROZOLE [Suspect]
     Indication: BREAST CANCER
  8. EPIRUBICIN HYDROCHLORIDE [Suspect]
     Indication: BREAST CANCER
     Dates: start: 20040101
  9. LETROZOLE [Suspect]
     Indication: BREAST CANCER
  10. LETROZOLE [Suspect]
     Indication: METASTASES TO BONE
  11. FLUOROURACIL [Suspect]
     Indication: BREAST CANCER
     Dates: start: 19980101

REACTIONS (5)
  - FATIGUE [None]
  - METASTASES TO RETROPERITONEUM [None]
  - HYPOAESTHESIA [None]
  - METASTASES TO BONE [None]
  - BREAST CANCER RECURRENT [None]
